FAERS Safety Report 19156506 (Version 1)
Quarter: 2021Q2

REPORT INFORMATION
  Report Type: Report from Study
  Country: US (occurrence: US)
  Receive Date: 20210420
  Receipt Date: 20210420
  Transmission Date: 20210717
  Serious: Yes (Death, Hospitalization, Other)
  Sender: FDA-Public Use
  Company Number: US-AUROBINDO-AUR-APL-2021-015352

PATIENT
  Age: 61 Year
  Sex: Male

DRUGS (3)
  1. EXENATIDE. [Suspect]
     Active Substance: EXENATIDE
     Indication: HYPERTRIGLYCERIDAEMIA
     Dosage: UNK
     Route: 065
  2. FENOFIBRATE. [Suspect]
     Active Substance: FENOFIBRATE
     Indication: HYPERTRIGLYCERIDAEMIA
     Dosage: 48 MILLIGRAM, DAILY
     Route: 065
  3. DOXAZOSIN [Suspect]
     Active Substance: DOXAZOSIN MESYLATE
     Indication: HYPERTRIGLYCERIDAEMIA
     Dosage: UNK
     Route: 065

REACTIONS (4)
  - Acute on chronic liver failure [Not Recovered/Not Resolved]
  - Drug-induced liver injury [Not Recovered/Not Resolved]
  - Cholelithiasis [Unknown]
  - Renal failure [Fatal]
